FAERS Safety Report 24752694 (Version 1)
Quarter: 2024Q4

REPORT INFORMATION
  Report Type: Spontaneous
  Country: JP (occurrence: JP)
  Receive Date: 20241219
  Receipt Date: 20241219
  Transmission Date: 20250115
  Serious: Yes (Other)
  Sender: ALEXION PHARMACEUTICALS
  Company Number: JP-ASTRAZENECA-240142052_064320_P_1

PATIENT
  Age: 59 Year

DRUGS (6)
  1. ANDEXXA [Suspect]
     Active Substance: ANDEXANET ALFA
     Indication: Putamen haemorrhage
     Dosage: 400 MG INTRAVENOUSLY AT A RATE OF 30 MG/MIN, FOLLOWED BY 480 MG INTRAVENOUSLY AT A RATE OF 4 MG/MIN
  2. ANDEXXA [Suspect]
     Active Substance: ANDEXANET ALFA
     Dosage: 400 MG INTRAVENOUSLY AT A RATE OF 30 MG/MIN, FOLLOWED BY 480 MG INTRAVENOUSLY AT A RATE OF 4 MG/MIN
     Route: 042
  3. ANDEXXA [Suspect]
     Active Substance: ANDEXANET ALFA
     Dosage: 400 MG INTRAVENOUSLY AT A RATE OF 30 MG/MIN, FOLLOWED BY 480 MG INTRAVENOUSLY AT A RATE OF 4 MG/MIN
  4. ANDEXXA [Suspect]
     Active Substance: ANDEXANET ALFA
     Dosage: 400 MG INTRAVENOUSLY AT A RATE OF 30 MG/MIN, FOLLOWED BY 480 MG INTRAVENOUSLY AT A RATE OF 4 MG/MIN
     Route: 042
  5. XARELTO [Concomitant]
     Active Substance: RIVAROXABAN
     Dosage: DOSE UNKNOWN
     Route: 048
  6. XARELTO [Concomitant]
     Active Substance: RIVAROXABAN
     Dosage: DOSE UNKNOWN

REACTIONS (2)
  - Haemorrhage [Unknown]
  - Deep vein thrombosis [Unknown]
